FAERS Safety Report 19268440 (Version 1)
Quarter: 2021Q2

REPORT INFORMATION
  Report Type: Spontaneous
  Country: US (occurrence: US)
  Receive Date: 20210517
  Receipt Date: 20210517
  Transmission Date: 20210717
  Serious: Yes (Hospitalization, Other)
  Sender: FDA-Public Use
  Company Number: US-PFIZER INC-2021496039

PATIENT
  Age: 74 Year
  Sex: Male
  Weight: 92.52 kg

DRUGS (5)
  1. ZOLOFT [Suspect]
     Active Substance: SERTRALINE HYDROCHLORIDE
     Dosage: 50 MG, 3X/DAY
     Dates: start: 2007
  2. KLONOPIN [Concomitant]
     Active Substance: CLONAZEPAM
     Dosage: 0.5?1 DOSE TAKEN TWICE DAILY: MORNING AND NIGHT
  3. OMEPRAZOLE. [Concomitant]
     Active Substance: OMEPRAZOLE
     Dosage: UNK, 1X/DAY
  4. SIMVASTATIN. [Concomitant]
     Active Substance: SIMVASTATIN
     Indication: BLOOD CHOLESTEROL
     Dosage: UNK
  5. MORPHINE [Concomitant]
     Active Substance: MORPHINE
     Indication: PAIN
     Dosage: UNK

REACTIONS (8)
  - Crying [Unknown]
  - Feeling abnormal [Unknown]
  - Expired product administered [Unknown]
  - Emotional disorder [Unknown]
  - Weight decreased [Unknown]
  - Urinary tract infection [Unknown]
  - Malignant neoplasm of eye [Unknown]
  - Haemoglobin decreased [Unknown]
